FAERS Safety Report 4369562-7 (Version None)
Quarter: 2004Q2

REPORT INFORMATION
  Report Type: 
  Country: None (occurrence: None)
  Receive Date: 20040603
  Receipt Date: 20040304
  Transmission Date: 20050107
  Serious: Yes (Hospitalization, Other)
  Sender: FDA-Public Use
  Company Number: PHEH2004US02821

PATIENT
  Age: 48 Year
  Sex: Female

DRUGS (2)
  1. ZELNORM [Suspect]
     Indication: IRRITABLE BOWEL SYNDROME
     Dosage: 3 MG, BID
     Route: 048
     Dates: start: 20040112, end: 20040215
  2. LOTENSIN [Concomitant]

REACTIONS (2)
  - ABDOMINAL PAIN [None]
  - ILEUS PARALYTIC [None]
